FAERS Safety Report 6359314-0 (Version None)
Quarter: 2009Q3

REPORT INFORMATION
  Report Type: 
  Country: None (occurrence: None)
  Receive Date: 20090914
  Receipt Date: 20090828
  Transmission Date: 20100115
  Serious: Yes (Death, Other)
  Sender: FDA-Public Use
  Company Number: 2009002614

PATIENT
  Age: 72 Year
  Sex: Male

DRUGS (9)
  1. ERLOTINIB HYDROCHLORIDE [Suspect]
     Indication: LUNG SQUAMOUS CELL CARCINOMA STAGE UNSPECIFIED
     Dosage: (150 MG, QD), ORAL
     Route: 048
     Dates: start: 20090203, end: 20090414
  2. MAGMITT [Suspect]
     Dosage: (990 MG), ORAL
     Route: 048
     Dates: start: 20090429
  3. GASMOTIN (MOSAPRIDE CITRATE) [Suspect]
     Indication: GASTRITIS
     Dosage: (15 MG, QD), ORAL
     Route: 048
     Dates: start: 20090429
  4. DIGOXIN [Concomitant]
  5. VERAPAMIL HYDROCHLORIDE [Concomitant]
  6. METHYCOBAL (MECOBALAMIN) [Concomitant]
  7. MUCOSTA (REBAMIPIDE) [Concomitant]
  8. AMARYL [Concomitant]
  9. HUMALOG [Concomitant]

REACTIONS (31)
  - ALTERED STATE OF CONSCIOUSNESS [None]
  - ARTERIOSCLEROSIS [None]
  - BENIGN PROSTATIC HYPERPLASIA [None]
  - BREATH SOUNDS ABNORMAL [None]
  - CHROMATURIA [None]
  - DECREASED APPETITE [None]
  - DIABETIC COMPLICATION [None]
  - DIARRHOEA [None]
  - DUODENAL ULCER [None]
  - EYELID OEDEMA [None]
  - FAECES DISCOLOURED [None]
  - GASTRIC HAEMORRHAGE [None]
  - GLOMERULONEPHRITIS RAPIDLY PROGRESSIVE [None]
  - HEPATIC STEATOSIS [None]
  - HYDRONEPHROSIS [None]
  - HYPOGLYCAEMIA [None]
  - INFLAMMATION [None]
  - MYOCLONUS [None]
  - NEPHRITIS [None]
  - NEPHROSCLEROSIS [None]
  - ORGANISING PNEUMONIA [None]
  - PERICARDIAL HAEMORRHAGE [None]
  - PERICARDITIS [None]
  - PULMONARY OEDEMA [None]
  - PYREXIA [None]
  - RENAL FAILURE ACUTE [None]
  - RESPIRATORY DISORDER [None]
  - RESPIRATORY FAILURE [None]
  - TUBULOINTERSTITIAL NEPHRITIS [None]
  - URINARY TRACT INFECTION [None]
  - URINE ABNORMALITY [None]
